FAERS Safety Report 5679904-8 (Version None)
Quarter: 2008Q1

REPORT INFORMATION
  Report Type: 
  Country: None (occurrence: None)
  Receive Date: 20080324
  Receipt Date: 20080303
  Transmission Date: 20080703
  Serious: Yes (Hospitalization)
  Sender: FDA-Public Use
  Company Number: CERZ-1000097

PATIENT
  Age: 31 Year
  Sex: Male
  Weight: 84 kg

DRUGS (11)
  1. CEREZYME [Suspect]
     Indication: GAUCHER'S DISEASE
     Dosage: 4800 U, Q4W, INTRAVENOUS; 4800, INTRAVENOUS; 10000, INTRAVENOUS
     Route: 042
     Dates: start: 20050215, end: 20060206
  2. CEREZYME [Suspect]
     Indication: GAUCHER'S DISEASE
     Dosage: 4800 U, Q4W, INTRAVENOUS; 4800, INTRAVENOUS; 10000, INTRAVENOUS
     Route: 042
     Dates: start: 20060201, end: 20070525
  3. CEREZYME [Suspect]
     Indication: GAUCHER'S DISEASE
     Dosage: 4800 U, Q4W, INTRAVENOUS; 4800, INTRAVENOUS; 10000, INTRAVENOUS
     Route: 042
     Dates: start: 20080228
  4. ATARAX 25 (HYDROXYZINE) [Concomitant]
  5. ZAVESCA [Concomitant]
  6. DEPAKENE [Concomitant]
  7. GARDENAL (PHENOBARBITAL) [Concomitant]
  8. ALLOPURINOL [Concomitant]
  9. SPECIAFOLDINE (FOLIC ACID) [Concomitant]
  10. URBANYL 10 (CLOBAZAM) [Concomitant]
  11. ZONEGRAN [Concomitant]

REACTIONS (14)
  - ABDOMINAL PAIN UPPER [None]
  - ASTHENIA [None]
  - BLOOD PRESSURE DECREASED [None]
  - CHILLS [None]
  - CONVULSION [None]
  - DISEASE PROGRESSION [None]
  - HEADACHE [None]
  - HOT FLUSH [None]
  - INFUSION RELATED REACTION [None]
  - PYREXIA [None]
  - SEPTIC SHOCK [None]
  - STATUS EPILEPTICUS [None]
  - TACHYCARDIA [None]
  - URINE OUTPUT DECREASED [None]
